FAERS Safety Report 20890188 (Version 3)
Quarter: 2022Q2

REPORT INFORMATION
  Report Type: Report from Study
  Country: KR (occurrence: KR)
  Receive Date: 20220530
  Receipt Date: 20220610
  Transmission Date: 20220721
  Serious: Yes (Hospitalization)
  Sender: FDA-Public Use
  Company Number: KR-KOREA IPSEN Pharma-2021-30834

PATIENT
  Age: 72 Year
  Sex: Female

DRUGS (13)
  1. CABOZANTINIB [Suspect]
     Active Substance: CABOZANTINIB
     Indication: Clear cell renal cell carcinoma
     Dosage: 40 MG, QD
     Route: 048
     Dates: start: 20200730, end: 20200818
  2. Citopcin [Concomitant]
     Indication: Infection prophylaxis
     Dosage: 200 MG, QD
     Route: 042
     Dates: start: 20200728
  3. CRESTOR [Concomitant]
     Active Substance: ROSUVASTATIN CALCIUM
     Indication: Hyperlipidaemia
     Dosage: 1 {DF}, QD
     Route: 048
     Dates: start: 20200414
  4. NORVASC [Concomitant]
     Active Substance: AMLODIPINE BESYLATE
     Indication: Hypertension
     Dosage: 1 {DF}, QD
     Route: 048
     Dates: start: 20180725
  5. DIOVAN [Concomitant]
     Active Substance: VALSARTAN
     Indication: Hypertension
     Dosage: 1 {DF}, QD
     Route: 048
     Dates: start: 20180809
  6. CARVEDILOL [Concomitant]
     Active Substance: CARVEDILOL
     Indication: Hypertension
     Dosage: 1 {DF}, BID
     Route: 048
     Dates: start: 20200414
  7. LINAGLIPTIN [Concomitant]
     Active Substance: LINAGLIPTIN
     Indication: Diabetes mellitus
     Dosage: 1 {DF}, QD
     Route: 048
     Dates: start: 20191230
  8. ESWONAMP [Concomitant]
     Indication: Prophylaxis
     Dosage: 1 {DF}, QD
     Route: 048
     Dates: start: 20200727
  9. K.U. Magnesium oxide [Concomitant]
     Indication: Constipation prophylaxis
     Dosage: TWO TABLETS, THREE TIMES PER DAY (ONGOING)
     Route: 048
     Dates: start: 20200729
  10. Dulackhan [Concomitant]
     Indication: Constipation prophylaxis
     Dosage: ONE PACK TWICE PER DAY (ONGOING)
     Route: 048
     Dates: start: 20200729
  11. Feroba you sr [Concomitant]
     Indication: Anaemia
     Dosage: 1 {DF}, QD
     Route: 048
     Dates: start: 20190327
  12. EXOPERIN [Concomitant]
     Indication: Pain
     Dosage: 1 {DF}, TID
     Route: 048
     Dates: start: 20200608
  13. NALOXONE HYDROCHLORIDE\OXYCODONE HYDROCHLORIDE [Concomitant]
     Active Substance: NALOXONE HYDROCHLORIDE\OXYCODONE HYDROCHLORIDE
     Indication: Renal cell carcinoma
     Dosage: 1 {DF}, TID
     Route: 048
     Dates: start: 20200723

REACTIONS (1)
  - Embolic cerebral infarction [Not Recovered/Not Resolved]

NARRATIVE: CASE EVENT DATE: 20200818
